FAERS Safety Report 4662463-6 (Version None)
Quarter: 2005Q2

REPORT INFORMATION
  Report Type: 
  Country: None (occurrence: None)
  Receive Date: 20050513
  Receipt Date: 20050513
  Transmission Date: 20051028
  Serious: Yes (Hospitalization)
  Sender: FDA-Public Use
  Company Number: None

PATIENT
  Age: 56 Year
  Sex: Male

DRUGS (15)
  1. FUROSEMIDE [Suspect]
     Indication: CARDIAC FAILURE CHRONIC
     Dosage: 80MG  PO BID
     Route: 048
     Dates: start: 20040719, end: 20050512
  2. SPIRONOLACTONE [Suspect]
     Indication: CARDIAC FAILURE CHRONIC
     Dosage: 25MG  PO QD
     Route: 048
     Dates: start: 20040719, end: 20050512
  3. PRILOSEC [Concomitant]
  4. POTASSIUM CHLORIDE [Concomitant]
  5. ALDACTONE [Concomitant]
  6. MICONAZOLE [Concomitant]
  7. METOLAZONE [Concomitant]
  8. FUROSEMIDE [Concomitant]
  9. FLUNISOLIDE [Concomitant]
  10. ENALAPRIL MALEATE [Concomitant]
  11. DIGOXIN [Concomitant]
  12. ASPIRIN [Concomitant]
  13. ALUMINUM/MAGNESIUM/SIMETHICONE [Concomitant]
  14. ALBUTEROL [Concomitant]
  15. AMIODARONE HCL [Concomitant]

REACTIONS (4)
  - DEHYDRATION [None]
  - ORTHOSTATIC INTOLERANCE [None]
  - RENAL FAILURE ACUTE [None]
  - VOMITING [None]
